FAERS Safety Report 8328198-3 (Version None)
Quarter: 2012Q2

REPORT INFORMATION
  Report Type: 
  Country: None (occurrence: None)
  Receive Date: 20120502
  Receipt Date: 20120425
  Transmission Date: 20120825
  Serious: Yes (Other)
  Sender: FDA-Public Use
  Company Number: BR-PFIZER INC-2012095726

PATIENT
  Age: 65 Year
  Sex: Female
  Weight: 54 kg

DRUGS (3)
  1. SUTENT [Suspect]
     Indication: RENAL CELL CARCINOMA
     Dosage: 50 MG, CYCLIC (4 BY 2)
     Route: 048
     Dates: start: 20120402, end: 20120419
  2. LEVOTHYROXINE SODIUM [Concomitant]
     Dosage: 75 MG, 1X/DAY (IN THE MORNING)
  3. MORPHINE [Concomitant]

REACTIONS (5)
  - FATIGUE [None]
  - ORAL PAIN [None]
  - OROPHARYNGEAL BLISTERING [None]
  - DECREASED APPETITE [None]
  - ABDOMINAL PAIN UPPER [None]
